FAERS Safety Report 12594890 (Version 1)
Quarter: 2016Q3

REPORT INFORMATION
  Report Type: Spontaneous
  Country: US (occurrence: US)
  Receive Date: 20160726
  Receipt Date: 20160726
  Transmission Date: 20161109
  Serious: No
  Sender: FDA-Public Use
  Company Number: US-UNITED THERAPEUTICS-UNT-2016-004525

PATIENT
  Age: 62 Year
  Sex: Female
  Weight: 36.28 kg

DRUGS (2)
  1. TYVASO [Suspect]
     Active Substance: TREPROSTINIL
     Indication: PULMONARY ARTERIAL HYPERTENSION
     Dosage: 18-54 MICROGRAMS, QID
     Dates: start: 20160226, end: 20160318
  2. DILTIAZEM. [Concomitant]
     Active Substance: DILTIAZEM
     Indication: PRODUCT USED FOR UNKNOWN INDICATION

REACTIONS (6)
  - Influenza like illness [Not Recovered/Not Resolved]
  - Dyspnoea exertional [Unknown]
  - Nausea [Unknown]
  - Headache [Unknown]
  - Viral infection [Unknown]
  - Product use issue [Unknown]

NARRATIVE: CASE EVENT DATE: 201603
